FAERS Safety Report 10275649 (Version 1)
Quarter: 2014Q3

REPORT INFORMATION
  Report Type: Spontaneous
  Country: US (occurrence: None)
  Receive Date: 20140701
  Receipt Date: 20140701
  Transmission Date: 20150326
  Serious: Yes (Other)
  Sender: FDA-Public Use
  Company Number: 2010S1000887

PATIENT
  Age: 46 Year
  Sex: Female

DRUGS (5)
  1. PHOSPHO-SODA [Suspect]
     Active Substance: SODIUM PHOSPHATE, DIBASIC\SODIUM PHOSPHATE, MONOBASIC
     Indication: HYSTERECTOMY
     Route: 048
     Dates: start: 20070912, end: 20070912
  2. ENLAPRIL (ENLAPRIL) [Concomitant]
  3. LISINOPRIL (LISINOPRIL) [Concomitant]
     Active Substance: LISINOPRIL
  4. HYDROCHLOROTHIAZIDE (HYDROCHLOROTHIAZIDE) [Concomitant]
     Active Substance: HYDROCHLOROTHIAZIDE
  5. ESCITALOPRAM [Concomitant]
     Active Substance: ESCITALOPRAM OXALATE

REACTIONS (11)
  - Urinary tract infection [None]
  - Oedema peripheral [None]
  - Hypertension [None]
  - Decreased appetite [None]
  - Renal failure chronic [None]
  - Oliguria [None]
  - Renal tubular necrosis [None]
  - Renal failure acute [None]
  - Hypotension [None]
  - Acute phosphate nephropathy [None]
  - Post procedural complication [None]

NARRATIVE: CASE EVENT DATE: 20070913
